FAERS Safety Report 5109866-3 (Version None)
Quarter: 2006Q3

REPORT INFORMATION
  Report Type: 
  Country: None (occurrence: None)
  Receive Date: 20060918
  Receipt Date: 20060918
  Transmission Date: 20061208
  Serious: Yes (Death)
  Sender: FDA-Public Use
  Company Number: None

PATIENT
  Age: 32 Year
  Sex: Female
  Weight: 54 kg

DRUGS (3)
  1. DIDANOSINE [Suspect]
     Indication: HIV INFECTION
     Dosage: 250 MG OD
     Dates: start: 20060426, end: 20060821
  2. ATAZANAVIR [Suspect]
     Indication: HIV INFECTION
     Dosage: 200 MG OD
     Dates: start: 20060426, end: 20060821
  3. EMTRICITABINE [Suspect]
     Indication: HIV INFECTION
     Dosage: 200 MG OD
     Dates: start: 20060426, end: 20060821

REACTIONS (5)
  - HEPATITIS [None]
  - LACTIC ACIDOSIS [None]
  - PANCREATITIS [None]
  - PNEUMONIA [None]
  - SEPSIS [None]
